FAERS Safety Report 5083402-2 (Version None)
Quarter: 2006Q3

REPORT INFORMATION
  Report Type: 
  Country: None (occurrence: None)
  Receive Date: 20060816
  Receipt Date: 20060816
  Transmission Date: 20061208
  Serious: Yes (Hospitalization, Other)
  Sender: FDA-Public Use
  Company Number: None

PATIENT
  Age: 36 Year
  Sex: Male

DRUGS (13)
  1. CYCLOSPORINE [Suspect]
     Indication: HEART TRANSPLANT
     Dosage: 200MG THREE TIMES DAILY PO
     Route: 048
     Dates: start: 20051016, end: 20051114
  2. PREDNISONE [Concomitant]
  3. MYCOPHENOLATE [Concomitant]
  4. ASPIRIN [Concomitant]
  5. METOPROLOL SUCCINATE EXTENDED RELEASE [Concomitant]
  6. OYSTERSHELL CALCIUM + D [Concomitant]
  7. MAALOX FAST BLOCKER [Concomitant]
  8. CLOTRIMAZOLE TROCHE [Concomitant]
  9. FUROSEMIDE [Concomitant]
  10. HUMULIN 70/30 [Concomitant]
  11. AMLODIPINE [Concomitant]
  12. BACTRIM [Concomitant]
  13. ACETAMINOPHEN + CODEINE [Concomitant]

REACTIONS (3)
  - NEPHROPATHY TOXIC [None]
  - OEDEMA PERIPHERAL [None]
  - RENAL FAILURE ACUTE [None]
